FAERS Safety Report 9506385 (Version 1)
Quarter: 2013Q1

REPORT INFORMATION
  Report Type: Spontaneous
  Country: US (occurrence: None)
  Receive Date: 20130301
  Receipt Date: 20130301
  Transmission Date: 20140127
  Serious: Yes (Hospitalization)
  Sender: FDA-Public Use
  Company Number: RB-37741-2012

PATIENT
  Age: 2 Month
  Sex: 0
  Weight: 3.6 kg

DRUGS (3)
  1. SUBOXONE [Suspect]
     Indication: DRUG DEPENDENCE
     Dosage: (2 MG QD  TRAMSPLACENTAL
     Route: 064
     Dates: start: 2011, end: 201110
  2. BUPRENORPHINE [Suspect]
     Indication: DRUG DEPENDENCE
     Dosage: (TAPERED TRANSPLACENTAL)
     Route: 064
     Dates: start: 201110, end: 201110
  3. SUBOXONE [Suspect]
     Indication: DRUG DEPENDENCE
     Route: 064
     Dates: start: 20110420, end: 2011

REACTIONS (1)
  - Exposure during pregnancy [None]
